FAERS Safety Report 23957642 (Version 1)
Quarter: 2024Q2

REPORT INFORMATION
  Report Type: Spontaneous
  Country: US (occurrence: US)
  Receive Date: 20240610
  Receipt Date: 20240610
  Transmission Date: 20240716
  Serious: No
  Sender: FDA-Public Use
  Company Number: US-STI Pharma LLC-2157966

PATIENT
  Age: 67 Year
  Sex: Female

DRUGS (3)
  1. ETHAMBUTOL HYDROCHLORIDE [Suspect]
     Active Substance: ETHAMBUTOL HYDROCHLORIDE
     Dates: start: 20240117, end: 20240223
  2. AZITHROMYCIN [Concomitant]
     Active Substance: AZITHROMYCIN
     Dates: start: 20240117, end: 20240223
  3. RIFABUTIN [Concomitant]
     Active Substance: RIFABUTIN
     Dates: start: 20240117, end: 20240223

REACTIONS (1)
  - Drug-induced liver injury [Unknown]
